FAERS Safety Report 7270533-1 (Version None)
Quarter: 2010Q4

REPORT INFORMATION
  Report Type: 
  Country: None (occurrence: None)
  Receive Date: 20101130
  Receipt Date: 20100308
  Transmission Date: 20110411
  Serious: Yes (Hospitalization)
  Sender: FDA-Public Use
  Company Number: 2010SP014821

PATIENT
  Age: 17 Year
  Sex: Female
  Weight: 76.2043 kg

DRUGS (2)
  1. NUVARING [Suspect]
     Indication: DYSMENORRHOEA
     Dosage: QM;VAG
     Route: 067
     Dates: start: 20060801, end: 20070801
  2. NUVARING [Suspect]
     Indication: MENOMETRORRHAGIA
     Dosage: QM;VAG
     Route: 067
     Dates: start: 20060801, end: 20070801

REACTIONS (2)
  - APPENDICECTOMY [None]
  - DEEP VEIN THROMBOSIS [None]
